FAERS Safety Report 7335986-9 (Version None)
Quarter: 2011Q1

REPORT INFORMATION
  Report Type: 
  Country: None (occurrence: None)
  Receive Date: 20110307
  Receipt Date: 20110223
  Transmission Date: 20110831
  Serious: Yes (Other)
  Sender: FDA-Public Use
  Company Number: PHEH2008US11939

PATIENT
  Sex: Female
  Weight: 47.3 kg

DRUGS (2)
  1. EXJADE [Suspect]
     Indication: MYELODYSPLASTIC SYNDROME
     Dosage: 1500 MG, QAM
     Route: 048
     Dates: start: 20071101
  2. EXJADE [Suspect]
     Indication: HAEMOSIDEROSIS

REACTIONS (3)
  - NEPHROLITHIASIS [None]
  - DYSURIA [None]
  - CHROMATURIA [None]
